FAERS Safety Report 4911678-8 (Version None)
Quarter: 2006Q1

REPORT INFORMATION
  Report Type: 
  Country: None (occurrence: None)
  Receive Date: 20060213
  Receipt Date: 20060130
  Transmission Date: 20060701
  Serious: Yes (Other)
  Sender: FDA-Public Use
  Company Number: 2006015627

PATIENT
  Age: 84 Year
  Sex: Male
  Weight: 68.0396 kg

DRUGS (4)
  1. LIPITOR [Suspect]
     Indication: BLOOD CHOLESTEROL
     Dosage: 10 MG (10 MG, 1 IN 1 D), ORAL
     Route: 048
  2. DARVOCET-N 100 [Concomitant]
  3. CARDIZEM [Concomitant]
  4. MULTIVITAMIN [Concomitant]

REACTIONS (2)
  - DERMATITIS CONTACT [None]
  - SKIN REACTION [None]
